FAERS Safety Report 23768895 (Version 1)
Quarter: 2024Q2

REPORT INFORMATION
  Report Type: Spontaneous
  Country: US (occurrence: US)
  Receive Date: 20240422
  Receipt Date: 20240422
  Transmission Date: 20240715
  Serious: No
  Sender: FDA-Public Use
  Company Number: US-PFIZER INC-202400089036

PATIENT
  Age: 58 Year
  Sex: Female
  Weight: 83.91 kg

DRUGS (1)
  1. NIVESTYM [Suspect]
     Active Substance: FILGRASTIM-AAFI
     Indication: Plasma cell myeloma
     Dosage: UNK

REACTIONS (2)
  - Headache [Unknown]
  - Pain [Unknown]
